FAERS Safety Report 5831658-8 (Version None)
Quarter: 2008Q3

REPORT INFORMATION
  Report Type: 
  Country: None (occurrence: None)
  Receive Date: 20080730
  Receipt Date: 20080716
  Transmission Date: 20090109
  Serious: Yes (Death)
  Sender: FDA-Public Use
  Company Number: 2008AL008564

PATIENT
  Age: 45 Year
  Sex: Male
  Weight: 136.0791 kg

DRUGS (1)
  1. DIGOXIN [Suspect]
     Indication: CARDIAC FAILURE CONGESTIVE
     Dosage: 0.125MG, DAILY, PO
     Route: 048
     Dates: start: 20060101, end: 20080308

REACTIONS (5)
  - CEREBRAL HAEMORRHAGE [None]
  - DISEASE RECURRENCE [None]
  - ISCHAEMIC CARDIOMYOPATHY [None]
  - PHARMACEUTICAL PRODUCT COMPLAINT [None]
  - VENTRICULAR FIBRILLATION [None]
